FAERS Safety Report 22198251 (Version 1)
Quarter: 2023Q2

REPORT INFORMATION
  Report Type: Spontaneous
  Country: US (occurrence: US)
  Receive Date: 20230411
  Receipt Date: 20230411
  Transmission Date: 20230721
  Serious: No
  Sender: FDA-Public Use
  Company Number: US-Kiniksa Pharmaceuticals Ltd.-2022KPU000743

PATIENT
  Age: 65 Year
  Sex: Female

DRUGS (4)
  1. ARCALYST [Suspect]
     Active Substance: RILONACEPT
     Indication: Pericarditis
     Route: 058
     Dates: start: 20221006
  2. KETOROLAC [Concomitant]
     Active Substance: KETOROLAC TROMETHAMINE
     Indication: Blood pressure measurement
  3. COLCHICINE [Concomitant]
     Active Substance: COLCHICINE
     Indication: Product used for unknown indication
  4. ATENOLOL [Concomitant]
     Active Substance: ATENOLOL
     Indication: Product used for unknown indication

REACTIONS (12)
  - Incorrect dose administered [Recovered/Resolved]
  - Angina pectoris [Unknown]
  - Blood pressure increased [Unknown]
  - Injection site reaction [Unknown]
  - Injection site bruising [Unknown]
  - Therapeutic product effect decreased [Unknown]
  - Product dose omission issue [Unknown]
  - Injection site erythema [Unknown]
  - Injection site rash [Unknown]
  - Migraine [Unknown]
  - Obstruction [Unknown]
  - Renal impairment [Unknown]

NARRATIVE: CASE EVENT DATE: 20220101
